FAERS Safety Report 6219452-X (Version None)
Quarter: 2009Q2

REPORT INFORMATION
  Report Type: 
  Country: None (occurrence: None)
  Receive Date: 20090609
  Receipt Date: 20090528
  Transmission Date: 20091009
  Serious: Yes (Hospitalization, Other)
  Sender: FDA-Public Use
  Company Number: PHHY2009DE19970

PATIENT
  Sex: Female

DRUGS (7)
  1. VOLTAREN [Suspect]
     Dosage: 150MG PER DAY
     Route: 065
     Dates: start: 20090303, end: 20090322
  2. XARELTO [Interacting]
     Indication: HIP ARTHROPLASTY
     Dosage: 10MG PER DAY
     Route: 048
     Dates: start: 20090303, end: 20090324
  3. XARELTO [Interacting]
     Indication: ANTICOAGULANT THERAPY
  4. PANTOZOL [Concomitant]
     Dosage: 40 MG, UNK
     Route: 065
     Dates: start: 20090303, end: 20090322
  5. NOVALGIN [Concomitant]
     Dosage: 60 GTT, UNK
     Route: 065
     Dates: start: 20090303, end: 20090322
  6. LYRICA [Concomitant]
     Dosage: 150 MG, UNK
     Route: 065
     Dates: start: 20090303, end: 20090322
  7. MST [Concomitant]
     Indication: PAIN
     Dosage: 30 MG, UNK
     Route: 065

REACTIONS (7)
  - ABDOMINAL PAIN LOWER [None]
  - DRUG INTERACTION [None]
  - GAMMA-GLUTAMYLTRANSFERASE INCREASED [None]
  - HAEMOGLOBIN DECREASED [None]
  - HEPATIC STEATOSIS [None]
  - LIVER FUNCTION TEST ABNORMAL [None]
  - VAGINAL HAEMORRHAGE [None]
